FAERS Safety Report 4782463-5 (Version None)
Quarter: 2005Q3

REPORT INFORMATION
  Report Type: 
  Country: None (occurrence: None)
  Receive Date: 20050929
  Receipt Date: 20041122
  Transmission Date: 20060218
  Serious: No
  Sender: FDA-Public Use
  Company Number: US-GLAXOSMITHKLINE-A0534860A

PATIENT

DRUGS (1)
  1. COREG [Suspect]

REACTIONS (2)
  - ABDOMINAL PAIN [None]
  - GLOSSODYNIA [None]
